FAERS Safety Report 14116613 (Version 1)
Quarter: 2017Q4

REPORT INFORMATION
  Report Type: Spontaneous
  Country: ZA (occurrence: ZA)
  Receive Date: 20171023
  Receipt Date: 20171023
  Transmission Date: 20180321
  Serious: Yes (Other)
  Sender: FDA-Public Use
  Company Number: ZA-009507513-1710ZAF010329

PATIENT
  Sex: Male

DRUGS (1)
  1. JANUMET [Suspect]
     Active Substance: METFORMIN HYDROCHLORIDE\SITAGLIPTIN PHOSPHATE
     Route: 048

REACTIONS (6)
  - Diabetes mellitus [Unknown]
  - Dysphagia [Unknown]
  - Nausea [Unknown]
  - Renal impairment [Unknown]
  - Weight decreased [Unknown]
  - Glomerular filtration rate decreased [Unknown]
